FAERS Safety Report 7198378-1 (Version None)
Quarter: 2010Q4

REPORT INFORMATION
  Report Type: 
  Country: None (occurrence: None)
  Receive Date: 20101227
  Receipt Date: 20101220
  Transmission Date: 20110411
  Serious: Yes (Death, Hospitalization)
  Sender: FDA-Public Use
  Company Number: ES-BRISTOL-MYERS SQUIBB COMPANY-15208903

PATIENT
  Age: 60 Year
  Sex: Female

DRUGS (1)
  1. CETUXIMAB [Suspect]
     Indication: HEAD AND NECK CANCER
     Dosage: RECENT INF:28AUG09
     Route: 042
     Dates: start: 20090701, end: 20090828

REACTIONS (4)
  - MUCOSAL INFLAMMATION [None]
  - RESPIRATORY FAILURE [None]
  - SUPERINFECTION [None]
  - VOMITING [None]
